FAERS Safety Report 14322360 (Version 6)
Quarter: 2021Q2

REPORT INFORMATION
  Report Type: Spontaneous
  Country: FR (occurrence: FR)
  Receive Date: 20171225
  Receipt Date: 20210416
  Transmission Date: 20210716
  Serious: Yes (Hospitalization, Other)
  Sender: FDA-Public Use
  Company Number: PHHY2017FR191859

PATIENT
  Age: 42 Year
  Sex: Male

DRUGS (11)
  1. OXALIPLATIN. [Suspect]
     Active Substance: OXALIPLATIN
     Indication: METASTASES TO LIVER
     Dosage: UNK UNK,QCY
     Route: 042
  2. SODIUM CHLORIDE. [Concomitant]
     Active Substance: SODIUM CHLORIDE
     Indication: PRODUCT USED FOR UNKNOWN INDICATION
     Dosage: 140 ML
     Route: 042
  3. OXALIPLATIN. [Suspect]
     Active Substance: OXALIPLATIN
     Indication: OESOPHAGEAL ADENOCARCINOMA
     Dosage: 190 MG, CYCLIC (190 MG,QCY, 2 CYCLICAL)
     Route: 042
  4. 5?FLUOROURACIL [Suspect]
     Active Substance: FLUOROURACIL
     Indication: METASTASES TO LIVER
     Dosage: 5500 MG,QCY, 3 CYCLICAL
     Route: 042
  5. 2?DEOXY?D?GLUCOSE [Concomitant]
     Indication: PRODUCT USED FOR UNKNOWN INDICATION
     Dosage: 100 ML
     Route: 040
  6. GLUCOSE [Concomitant]
     Active Substance: DEXTROSE
     Dosage: 500 ML
     Route: 042
  7. FOLINIC ACID [Concomitant]
     Active Substance: LEUCOVORIN
     Indication: OESOPHAGEAL ADENOCARCINOMA
  8. FOLINIC ACID [Concomitant]
     Active Substance: LEUCOVORIN
     Indication: GASTROINTESTINAL CANCER METASTATIC
  9. 5?FLUOROURACIL [Suspect]
     Active Substance: FLUOROURACIL
     Indication: OESOPHAGEAL ADENOCARCINOMA
     Dosage: 920 MG, (400 MG/M2, 3 CYCLICAL I.E. 920 MG TOTAL DOSE IN BOLUS IN 100 ML OF 5% GLUCOSE SOLUTION)
     Route: 040
  10. FOLINIC ACID [Concomitant]
     Active Substance: LEUCOVORIN
     Indication: METASTASES TO LIVER
     Dosage: UNK,QCY
     Route: 042
  11. GLUCOSE [Concomitant]
     Active Substance: DEXTROSE
     Indication: PRODUCT USED FOR UNKNOWN INDICATION
     Dosage: 100 ML
     Route: 040

REACTIONS (11)
  - Chest discomfort [Unknown]
  - Cough [Recovered/Resolved]
  - Bronchospasm [Recovered/Resolved]
  - Cardiotoxicity [Recovered/Resolved]
  - Catheter site extravasation [Recovered/Resolved]
  - Mediastinal disorder [Unknown]
  - Vocal cord paralysis [Unknown]
  - Dysphonia [Recovered/Resolved]
  - Administration site extravasation [Recovered/Resolved]
  - Toxicity to various agents [Unknown]
  - Pain [Recovered/Resolved]
